FAERS Safety Report 5105455-5 (Version None)
Quarter: 2006Q3

REPORT INFORMATION
  Report Type: 
  Country: None (occurrence: None)
  Receive Date: 20060915
  Receipt Date: 20060703
  Transmission Date: 20061208
  Serious: No
  Sender: FDA-Public Use
  Company Number: US-GLAXOSMITHKLINE-A0610996A

PATIENT
  Age: 62 Year
  Sex: Female

DRUGS (6)
  1. AVANDARYL [Suspect]
     Route: 048
     Dates: start: 20060601
  2. COUMADIN [Concomitant]
  3. TOPROL-XL [Concomitant]
  4. DIGOXIN [Concomitant]
  5. ALTACE [Concomitant]
  6. ZOCOR [Concomitant]

REACTIONS (1)
  - WEIGHT INCREASED [None]
